FAERS Safety Report 9699101 (Version 1)
Quarter: 2013Q4

REPORT INFORMATION
  Report Type: Spontaneous
  Country: US (occurrence: None)
  Receive Date: 20131108
  Receipt Date: 20131108
  Transmission Date: 20140711
  Serious: Yes (Other)
  Sender: FDA-Public Use
  Company Number: 2013037349

PATIENT
  Sex: Female
  Weight: 102.06 kg

DRUGS (12)
  1. HIZENTRA [Suspect]
     Indication: IMMUNODEFICIENCY COMMON VARIABLE
     Dosage: 14 G 1X/WEEK, 2 GM 10 ML VIAL; INFUSE 1-2  HOURS SUBCUTANEOUS)
  2. DIPHENHYDRAMINE (DIPHENHYDRAMINE) [Concomitant]
  3. LIDOCAINE PRILOCAINE (EMLA) [Concomitant]
  4. EPIPEN (EPINEPHRINE) [Concomitant]
  5. ATIVAN (LORAZEPAM) [Concomitant]
  6. MULTIVITAMIN (ACCOMIN MULTIVITAMIN) [Concomitant]
  7. CYMBALTA (DULOXETINE HYDROCHLORIDE) [Concomitant]
  8. KLONOPIN (CLONAZEPAM) [Concomitant]
  9. JANUVIA (ALL OTHER THERAPEUTIC PRODUCTS) [Concomitant]
  10. LIPITOR (ATORVASTATIN CALCIUM) [Concomitant]
  11. METFORMIN (METFORMIN) [Concomitant]
  12. MOTRIN (IBUPROFEN) [Concomitant]

REACTIONS (6)
  - Fungal infection [None]
  - Sinusitis [None]
  - Fatigue [None]
  - Fatigue [None]
  - Contusion [None]
  - Hepatitis B [None]
